FAERS Safety Report 25233850 (Version 1)
Quarter: 2025Q2

REPORT INFORMATION
  Report Type: Spontaneous
  Country: CN (occurrence: CN)
  Receive Date: 20250424
  Receipt Date: 20250424
  Transmission Date: 20250716
  Serious: Yes (Other)
  Sender: CSL BEHRING
  Company Number: CN-BEH-2025202307

PATIENT
  Age: 69 Year
  Sex: Male
  Weight: 71 kg

DRUGS (2)
  1. ALBURX [Suspect]
     Active Substance: ALBUMIN HUMAN
     Indication: Malnutrition
     Dosage: 10 G, OD
     Route: 041
     Dates: start: 20250411, end: 20250411
  2. ALBURX [Suspect]
     Active Substance: ALBUMIN HUMAN
     Dosage: 100 G, QD
     Route: 041
     Dates: start: 20250411, end: 20250411

REACTIONS (1)
  - Rash [Recovering/Resolving]

NARRATIVE: CASE EVENT DATE: 20250412
